APPROVED DRUG PRODUCT: TIROFIBAN HYDROCHLORIDE
Active Ingredient: TIROFIBAN HYDROCHLORIDE
Strength: EQ 12.5MG BASE/250ML (EQ 0.05MG BASE/ML)
Dosage Form/Route: SOLUTION;INTRAVENOUS
Application: A206888 | Product #001 | TE Code: AP
Applicant: GLAND PHARMA LTD
Approved: Apr 8, 2021 | RLD: No | RS: No | Type: RX